FAERS Safety Report 9524294 (Version 1)
Quarter: 2013Q3

REPORT INFORMATION
  Report Type: Spontaneous
  Country: US (occurrence: None)
  Receive Date: 20130912
  Receipt Date: 20130912
  Transmission Date: 20140515
  Serious: Yes (Disabling)
  Sender: FDA-Public Use
  Company Number: None

PATIENT
  Age: 69 Year
  Sex: Female

DRUGS (4)
  1. LIPITOR [Suspect]
     Indication: BLOOD CHOLESTEROL INCREASED
     Route: 048
     Dates: start: 20130329, end: 20130429
  2. MULTI VITAMIN [Concomitant]
  3. NATURE MADE B 12 COMPLEX [Concomitant]
  4. CHEWABLES C^S [Concomitant]

REACTIONS (11)
  - Fatigue [None]
  - Malaise [None]
  - Chromaturia [None]
  - Urine odour abnormal [None]
  - Weight increased [None]
  - Abdominal pain upper [None]
  - Abdominal distension [None]
  - Drug dose omission [None]
  - Swelling [None]
  - Asthenia [None]
  - Urinary incontinence [None]
